FAERS Safety Report 24700876 (Version 1)
Quarter: 2024Q4

REPORT INFORMATION
  Report Type: Spontaneous
  Country: US (occurrence: None)
  Receive Date: 20241204
  Receipt Date: 20241204
  Transmission Date: 20250114
  Serious: No
  Sender: Public
  Company Number: None

PATIENT
  Age: 26 Year
  Sex: Male
  Weight: 67.5 kg

DRUGS (1)
  1. BIOTIN\FINASTERIDE\LATANOPROST\MINOXIDIL [Suspect]
     Active Substance: BIOTIN\FINASTERIDE\LATANOPROST\MINOXIDIL
     Dosage: FREQUENCY : TWICE A DAY;?
     Route: 061
     Dates: start: 20241122, end: 20241201

REACTIONS (5)
  - Brain fog [None]
  - Anhedonia [None]
  - Mood altered [None]
  - Insomnia [None]
  - Alcohol use [None]

NARRATIVE: CASE EVENT DATE: 20241201
